FAERS Safety Report 18410335 (Version 3)
Quarter: 2021Q1

REPORT INFORMATION
  Report Type: Spontaneous
  Country: US (occurrence: US)
  Receive Date: 20201021
  Receipt Date: 20210303
  Transmission Date: 20210419
  Serious: Yes (Other)
  Sender: FDA-Public Use
  Company Number: US-BAYER-2020-221014

PATIENT
  Age: 52 Year
  Sex: Female

DRUGS (1)
  1. MIRENA [Suspect]
     Active Substance: LEVONORGESTREL
     Dosage: 20?G PER DAY, CONTINUOUSLY
     Route: 015
     Dates: end: 20200820

REACTIONS (9)
  - Persistent depressive disorder [Unknown]
  - Obesity [Unknown]
  - Device breakage [Not Recovered/Not Resolved]
  - Menopause [Unknown]
  - Lichen sclerosus [Unknown]
  - Mood swings [Unknown]
  - Vitamin D deficiency [Unknown]
  - Complication of device removal [None]
  - Vaginal odour [Unknown]

NARRATIVE: CASE EVENT DATE: 20200820
